FAERS Safety Report 17705992 (Version 2)
Quarter: 2020Q3

REPORT INFORMATION
  Report Type: Report from Study
  Country: US (occurrence: US)
  Receive Date: 20200424
  Receipt Date: 20200714
  Transmission Date: 20201102
  Serious: Yes (Death, Hospitalization, Other)
  Sender: FDA-Public Use
  Company Number: US-JNJFOC-20200419826

PATIENT
  Age: 65 Year
  Sex: Female
  Weight: 72.19 kg

DRUGS (10)
  1. ZYPREXA [Concomitant]
     Active Substance: OLANZAPINE
  2. COREG [Concomitant]
     Active Substance: CARVEDILOL
  3. PLAVIX [Concomitant]
     Active Substance: CLOPIDOGREL BISULFATE
  4. XALATAN [Concomitant]
     Active Substance: LATANOPROST
  5. SPRAVATO [Suspect]
     Active Substance: ESKETAMINE
     Indication: DEPRESSION
     Dosage: MOST RECENT DOSE ON 12/FEB/2020
     Dates: start: 20190723
  6. TRINTELLIX [Concomitant]
     Active Substance: VORTIOXETINE HYDROBROMIDE
  7. GLUCOTROL [Concomitant]
     Active Substance: GLIPIZIDE
  8. BUSPAR [Concomitant]
     Active Substance: BUSPIRONE HYDROCHLORIDE
     Indication: ANXIETY
  9. NORVASC [Concomitant]
     Active Substance: AMLODIPINE BESYLATE
     Indication: HYPERTENSION
  10. PRINZIDE [Concomitant]
     Active Substance: HYDROCHLOROTHIAZIDE\LISINOPRIL
     Dosage: 20?25 MG

REACTIONS (2)
  - Hip fracture [Fatal]
  - Fall [Fatal]

NARRATIVE: CASE EVENT DATE: 20200224
